FAERS Safety Report 22031003 (Version 2)
Quarter: 2023Q2

REPORT INFORMATION
  Report Type: Spontaneous
  Country: BR (occurrence: BR)
  Receive Date: 20230223
  Receipt Date: 20230525
  Transmission Date: 20230721
  Serious: No
  Sender: FDA-Public Use
  Company Number: BR-JNJFOC-20230240483

PATIENT
  Age: 24 Year
  Sex: Male

DRUGS (12)
  1. SPRAVATO [Suspect]
     Active Substance: ESKETAMINE
     Indication: Major depression
     Dosage: 1ST APPLICATION
     Dates: start: 20220606, end: 20220606
  2. SPRAVATO [Suspect]
     Active Substance: ESKETAMINE
     Indication: Suicidal ideation
     Dosage: 1ST WEEK - 84MG 2X/WEEK
     Dates: start: 20220614
  3. SPRAVATO [Suspect]
     Active Substance: ESKETAMINE
     Dosage: END OF 4TH WEEK - 84MG 2X-}1X/WEEK
     Dates: start: 20220701
  4. SPRAVATO [Suspect]
     Active Substance: ESKETAMINE
     Dosage: (8TH WEEK/ 2ND MONTH
     Dates: start: 20220804
  5. SPRAVATO [Suspect]
     Active Substance: ESKETAMINE
     Dosage: 8TH WEEK/ 2ND MONTH
     Dates: start: 20220804
  6. SPRAVATO [Suspect]
     Active Substance: ESKETAMINE
     Dosage: 15TH WEEK/ 4TH MONTH
     Dates: start: 20220922
  7. SPRAVATO [Suspect]
     Active Substance: ESKETAMINE
     Dosage: 21ST WEEK/5TH MONTH
     Dates: start: 20221025
  8. SPRAVATO [Suspect]
     Active Substance: ESKETAMINE
     Dosage: 26TH WEEK/6TH MONTH
     Dates: start: 20221130, end: 202212
  9. VENLAFAXINE [Concomitant]
     Active Substance: VENLAFAXINE HYDROCHLORIDE
  10. CLOMIPRAMINE [Concomitant]
     Active Substance: CLOMIPRAMINE
  11. QUETIAPINE FUMARATE [Concomitant]
     Active Substance: QUETIAPINE FUMARATE
  12. LITHIUM [Concomitant]
     Active Substance: LITHIUM
     Dosage: CR- 0-0-2

REACTIONS (10)
  - Foot operation [Recovered/Resolved]
  - Anhedonia [Recovered/Resolved]
  - Asthenia [Recovered/Resolved]
  - Abulia [Recovered/Resolved]
  - Vision blurred [Recovered/Resolved]
  - Dizziness [Recovered/Resolved]
  - Nausea [Recovered/Resolved]
  - Dysgeusia [Recovered/Resolved]
  - Feelings of worthlessness [Recovered/Resolved]
  - Sedation [Recovered/Resolved]

NARRATIVE: CASE EVENT DATE: 20220101
